FAERS Safety Report 13882286 (Version 1)
Quarter: 2017Q3

REPORT INFORMATION
  Report Type: Spontaneous
  Country: US (occurrence: US)
  Receive Date: 20170818
  Receipt Date: 20170818
  Transmission Date: 20171127
  Serious: Yes (Hospitalization)
  Sender: FDA-Public Use
  Company Number: US-SA-2017SA149186

PATIENT
  Age: 30 Year
  Sex: Female

DRUGS (2)
  1. LEMTRADA [Suspect]
     Active Substance: ALEMTUZUMAB
     Route: 041
  2. LEMTRADA [Suspect]
     Active Substance: ALEMTUZUMAB
     Route: 041
     Dates: start: 2016, end: 2016

REACTIONS (4)
  - Chest pain [Unknown]
  - Pulmonary mass [Unknown]
  - Rift Valley fever [Unknown]
  - Bradycardia [Unknown]

NARRATIVE: CASE EVENT DATE: 2016
